FAERS Safety Report 9230041 (Version 1)
Quarter: 2013Q2

REPORT INFORMATION
  Report Type: Spontaneous
  Country: US (occurrence: US)
  Receive Date: 20130415
  Receipt Date: 20130415
  Transmission Date: 20140414
  Serious: No
  Sender: FDA-Public Use
  Company Number: US-009507513-1304USA006347

PATIENT
  Age: 40 Year
  Sex: Female

DRUGS (1)
  1. JANUMET [Suspect]
     Dosage: 50/500

REACTIONS (1)
  - Hepatic enzyme increased [Unknown]
